FAERS Safety Report 23911103 (Version 1)
Quarter: 2024Q2

REPORT INFORMATION
  Report Type: Spontaneous
  Country: US (occurrence: US)
  Receive Date: 20240528
  Receipt Date: 20240528
  Transmission Date: 20240715
  Serious: Yes (Hospitalization, Other)
  Sender: FDA-Public Use
  Company Number: US-PFIZER INC-202400178527

PATIENT
  Age: 76 Year
  Sex: Male
  Weight: 146.96 kg

DRUGS (2)
  1. MEKTOVI [Suspect]
     Active Substance: BINIMETINIB
     Indication: Metastatic malignant melanoma
     Dosage: 3 DF, 2X/DAY (THREE IN THE MORNING AND THREE AT NIGHT)
     Route: 048
     Dates: start: 2023, end: 20240405
  2. BRAFTOVI [Suspect]
     Active Substance: ENCORAFENIB
     Indication: Metastatic malignant melanoma
     Dosage: 5 DF, DAILY (FIVE CAPSULES AT NIGHT)
     Route: 048
     Dates: start: 2023, end: 20240405

REACTIONS (4)
  - Bacteraemia [Unknown]
  - Septic shock [Unknown]
  - Pasteurella infection [Unknown]
  - Dyspnoea [Not Recovered/Not Resolved]

NARRATIVE: CASE EVENT DATE: 20240401
